FAERS Safety Report 7630349 (Version 8)
Quarter: 2014Q1

REPORT INFORMATION
  Report Type: Spontaneous
  Country: FR (occurrence: FR)
  Receive Date: 20101015
  Receipt Date: 20140110
  Transmission Date: 20141002
  Serious: Yes (Hospitalization, Other)
  Sender: FDA-Public Use
  Company Number: FR-BIOGENIDEC-2010BI035278

PATIENT
  Age: 39 Year
  Sex: Female

DRUGS (8)
  1. TYSABRI [Suspect]
     Indication: RELAPSING-REMITTING MULTIPLE SCLEROSIS
     Route: 042
     Dates: start: 200707, end: 20100929
  2. PREVISCAN [Concomitant]
     Indication: DEEP VEIN THROMBOSIS
  3. LIORESAL [Concomitant]
  4. MANTADIX [Concomitant]
  5. XATRAL [Concomitant]
  6. NEURONTIN [Concomitant]
  7. DITROPAN [Concomitant]
  8. RIVOTRIL [Concomitant]

REACTIONS (4)
  - Progressive multifocal leukoencephalopathy [Not Recovered/Not Resolved]
  - Epilepsy [Recovered/Resolved]
  - Immune reconstitution inflammatory syndrome [Recovered/Resolved]
  - Multiple sclerosis [Unknown]
